FAERS Safety Report 12831928 (Version 1)
Quarter: 2016Q4

REPORT INFORMATION
  Report Type: Spontaneous
  Country: IT (occurrence: IT)
  Receive Date: 20161010
  Receipt Date: 20161010
  Transmission Date: 20170207
  Serious: Yes (Death)
  Sender: FDA-Public Use
  Company Number: IT-ACCORD-044649

PATIENT
  Sex: Male

DRUGS (5)
  1. OXALIPLATIN. [Concomitant]
     Active Substance: OXALIPLATIN
     Indication: COLON CANCER
     Dosage: 172.6 MG
     Route: 040
     Dates: start: 20160919, end: 20160920
  2. PANITUMUMAB [Concomitant]
     Active Substance: PANITUMUMAB
     Indication: COLON CANCER
     Dosage: 540 MG
     Route: 040
     Dates: start: 20160919, end: 20160920
  3. DEXAMETHASONE. [Concomitant]
     Active Substance: DEXAMETHASONE
     Indication: COLON CANCER
     Dosage: 8 MG
     Route: 040
     Dates: start: 20160919, end: 20160919
  4. FLUOROURACIL. [Suspect]
     Active Substance: FLUOROURACIL
     Indication: COLON CANCER
     Route: 040
     Dates: start: 20160919, end: 20160920
  5. ONDANSETRON [Concomitant]
     Active Substance: ONDANSETRON
     Indication: COLON CANCER
     Dosage: 8 MG
     Route: 040

REACTIONS (2)
  - Circulatory collapse [Fatal]
  - Cardiotoxicity [Fatal]
